FAERS Safety Report 5546056-4 (Version None)
Quarter: 2007Q4

REPORT INFORMATION
  Report Type: 
  Country: None (occurrence: None)
  Receive Date: 20071211
  Receipt Date: 20070911
  Transmission Date: 20080405
  Serious: No
  Sender: FDA-Public Use
  Company Number: US-BRISTOL-MYERS SQUIBB COMPANY-13904248

PATIENT
  Age: 66 Year
  Sex: Male

DRUGS (12)
  1. EMSAM [Suspect]
     Indication: CONFUSIONAL STATE
     Route: 062
     Dates: start: 20070801
  2. EMSAM [Suspect]
     Indication: PARKINSONISM
     Route: 062
     Dates: start: 20070801
  3. ASACOL [Concomitant]
  4. ALLOPURINOL [Concomitant]
  5. BYETTA [Concomitant]
  6. GLUCOTROL [Concomitant]
  7. ATIVAN [Concomitant]
  8. REGLAN [Concomitant]
  9. LUNESTA [Concomitant]
  10. PROTONIX [Concomitant]
  11. METAMUCIL [Concomitant]
  12. REQUIP [Concomitant]

REACTIONS (1)
  - INSOMNIA [None]
